FAERS Safety Report 18667638 (Version 1)
Quarter: 2020Q4

REPORT INFORMATION
  Report Type: Report from Study
  Country: JP (occurrence: JP)
  Receive Date: 20201228
  Receipt Date: 20201228
  Transmission Date: 20210114
  Serious: Yes (Disabling, Other)
  Sender: FDA-Public Use
  Company Number: JP-ALXN-A202003138AA

PATIENT
  Sex: Female
  Weight: 63 kg

DRUGS (17)
  1. DAIPHEN [Concomitant]
     Active Substance: SULFAMETHOXAZOLE\TRIMETHOPRIM
     Indication: PRODUCT USED FOR UNKNOWN INDICATION
     Dosage: UNK, QD
     Route: 048
     Dates: start: 20200204
  2. PREDONINE [Concomitant]
     Active Substance: PREDNISOLONE
     Indication: NEUROMYELITIS OPTICA SPECTRUM DISORDER
     Dosage: 10 MG, QD
     Route: 048
     Dates: start: 20190610, end: 20190612
  3. BETAMETHASONE. [Concomitant]
     Active Substance: BETAMETHASONE
     Indication: NEUROMYELITIS OPTICA SPECTRUM DISORDER
     Dosage: 1 MG, QD
     Route: 048
  4. MENATETRENONE [Concomitant]
     Active Substance: MENATETRENONE
     Indication: PRODUCT USED FOR UNKNOWN INDICATION
     Dosage: 15 MG, QD
     Route: 048
     Dates: start: 20200204
  5. PREDNISOLONE. [Concomitant]
     Active Substance: PREDNISOLONE
     Indication: NEUROMYELITIS OPTICA SPECTRUM DISORDER
     Dosage: 2 MG, QD
     Route: 048
  6. NEORAL [Concomitant]
     Active Substance: CYCLOSPORINE
     Indication: NEUROMYELITIS OPTICA SPECTRUM DISORDER
     Dosage: 300 MG, BID
     Route: 048
     Dates: end: 20200204
  7. SOLIRIS [Suspect]
     Active Substance: ECULIZUMAB
     Indication: NEUROMYELITIS OPTICA SPECTRUM DISORDER
     Dosage: 900 MG, QW
     Route: 042
     Dates: start: 20200204, end: 20200225
  8. PREDONINE [Concomitant]
     Active Substance: PREDNISOLONE
     Dosage: 15 MG, QD
     Route: 048
     Dates: start: 20200115, end: 20200117
  9. BREDININ [Concomitant]
     Active Substance: MIZORIBINE
     Indication: NEUROMYELITIS OPTICA SPECTRUM DISORDER
     Dosage: 100 MG, BID
     Route: 048
  10. CIPROFLOXACIN. [Concomitant]
     Active Substance: CIPROFLOXACIN
     Indication: PROPHYLAXIS
     Dosage: 400 MG, BID
     Route: 048
     Dates: start: 20200204, end: 20200204
  11. SOLIRIS [Suspect]
     Active Substance: ECULIZUMAB
     Dosage: 1200 MG, Q2W
     Route: 042
     Dates: start: 20200717
  12. VENILON [Concomitant]
     Active Substance: HUMAN IMMUNOGLOBULIN G
     Indication: NEUROMYELITIS OPTICA SPECTRUM DISORDER
     Dosage: UNK, QD
     Route: 065
     Dates: start: 20200619, end: 20200713
  13. AUGMENTIN [Concomitant]
     Active Substance: AMOXICILLIN\CLAVULANATE POTASSIUM
     Indication: PROPHYLAXIS
     Dosage: 750 MG, TID
     Route: 048
     Dates: start: 20200204, end: 20200204
  14. EDIROL [Concomitant]
     Active Substance: ELDECALCITOL
     Indication: PRODUCT USED FOR UNKNOWN INDICATION
     Dosage: 0.5 ?G, QD
     Route: 048
     Dates: start: 20200204
  15. CALFINA [Concomitant]
     Indication: PRODUCT USED FOR UNKNOWN INDICATION
     Dosage: 0.5 ?G, QD
     Route: 048
     Dates: end: 20200204
  16. SOLIRIS [Suspect]
     Active Substance: ECULIZUMAB
     Dosage: 1200 MG, Q2W
     Route: 042
     Dates: start: 20200302, end: 20200331
  17. CICLOSPORIN [Concomitant]
     Active Substance: CYCLOSPORINE
     Indication: NEUROMYELITIS OPTICA SPECTRUM DISORDER
     Dosage: 300 MG, BID
     Route: 048
     Dates: end: 20200204

REACTIONS (4)
  - Headache [Not Recovered/Not Resolved]
  - Condition aggravated [Not Recovered/Not Resolved]
  - Neuromyelitis optica spectrum disorder [Unknown]
  - Eye pain [Not Recovered/Not Resolved]

NARRATIVE: CASE EVENT DATE: 202002
